FAERS Safety Report 10009889 (Version 1)
Quarter: 2014Q1

REPORT INFORMATION
  Report Type: Spontaneous
  Country: US (occurrence: US)
  Receive Date: 20140312
  Receipt Date: 20140312
  Transmission Date: 20141002
  Serious: No
  Sender: FDA-Public Use
  Company Number: US-INCYTE CORPORATION-2013IN000488

PATIENT
  Age: 77 Year
  Sex: Male

DRUGS (6)
  1. JAKAFI [Suspect]
     Indication: MYELOFIBROSIS
     Dosage: 15 MG, BID
  2. LEVOTHYROXINE [Concomitant]
  3. SPIRONOLACTONE [Concomitant]
  4. HYDROXYUREA [Concomitant]
  5. 81 MG ASPIRIN [Concomitant]
  6. SUCRALFATE [Concomitant]

REACTIONS (3)
  - Splenomegaly [Unknown]
  - Drug ineffective [Unknown]
  - Disease progression [Unknown]
